FAERS Safety Report 10207728 (Version 1)
Quarter: 2014Q2

REPORT INFORMATION
  Report Type: Spontaneous
  Country: US (occurrence: US)
  Receive Date: 20140530
  Receipt Date: 20140530
  Transmission Date: 20141212
  Serious: No
  Sender: FDA-Public Use
  Company Number: US-GLAXOSMITHKLINE-A1056754A

PATIENT
  Age: 34 Year
  Sex: Female

DRUGS (18)
  1. VENTOLIN [Suspect]
     Indication: CHRONIC OBSTRUCTIVE PULMONARY DISEASE
     Dosage: 2PUFF FOUR TIMES PER DAY
     Route: 055
  2. DILTIAZEM [Concomitant]
  3. NEXIUM [Concomitant]
  4. ABILIFY [Concomitant]
  5. CYMBALTA [Concomitant]
  6. MIRAPEX [Concomitant]
  7. XANAX [Concomitant]
  8. ROXICODONE [Concomitant]
  9. FENTANYL [Concomitant]
  10. DALIRESP [Concomitant]
  11. MONTELUKAST [Concomitant]
  12. METFORMIN [Concomitant]
  13. PROPANOLOL [Concomitant]
  14. LEVOTHYROXINE [Concomitant]
  15. OMNICEF [Concomitant]
  16. PREDNISONE [Concomitant]
  17. QVAR [Concomitant]
  18. DUONEB [Concomitant]

REACTIONS (2)
  - Bronchitis [Recovered/Resolved with Sequelae]
  - Off label use [Unknown]
